FAERS Safety Report 8336231 (Version 6)
Quarter: 2012Q4

REPORT INFORMATION
  Report Type: 
  Country: CN (occurrence: CN)
  Receive Date: 20120113
  Receipt Date: 20121206
  Transmission Date: 20130627
  Serious: Yes (Death, Hospitalization)
  Sender: FDA-Public Use
  Company Number: PHHO2012CN000599

PATIENT
  Age: 41 Year
  Sex: Male
  Weight: 57 kg

DRUGS (3)
  1. AMN107 [Suspect]
     Indication: CHRONIC MYELOID LEUKAEMIA
     Dosage: 300 mg, BID
     Route: 048
     Dates: start: 20110716, end: 20111007
  2. AMN107 [Suspect]
     Dosage: No treatment received
     Dates: start: 20111008, end: 20111103
  3. AMN107 [Suspect]
     Dosage: 400 mg, QD
     Route: 048
     Dates: start: 20111104, end: 20111130

REACTIONS (5)
  - Cerebral haemorrhage [Fatal]
  - Bone marrow failure [Not Recovered/Not Resolved]
  - Leukopenia [Unknown]
  - Neutropenia [Unknown]
  - Thrombocytopenia [Unknown]
